FAERS Safety Report 8860571 (Version 1)
Quarter: 2012Q4

REPORT INFORMATION
  Report Type: 
  Country: ES (occurrence: ES)
  Receive Date: 20121025
  Receipt Date: 20121025
  Transmission Date: 20130627
  Serious: Yes (Hospitalization)
  Sender: FDA-Public Use
  Company Number: ES-SANOFI-AVENTIS-2012SA075991

PATIENT
  Age: 64 Year
  Sex: Female

DRUGS (1)
  1. CLEXANE [Suspect]
     Indication: CARDIAC PACEMAKER INSERTION
     Route: 058
     Dates: start: 20120305, end: 20120313

REACTIONS (1)
  - Hepatitis [Recovered/Resolved]
